FAERS Safety Report 12687796 (Version 1)
Quarter: 2016Q3

REPORT INFORMATION
  Report Type: Spontaneous
  Country: US (occurrence: US)
  Receive Date: 20160826
  Receipt Date: 20160826
  Transmission Date: 20161109
  Serious: Yes (Hospitalization, Other)
  Sender: FDA-Public Use
  Company Number: US-PAR PHARMACEUTICAL COMPANIES-2016SCPR015791

PATIENT

DRUGS (3)
  1. VENLAFAXINE HYDROCHLORIDE. [Suspect]
     Active Substance: VENLAFAXINE HYDROCHLORIDE
     Indication: MAJOR DEPRESSION
     Dosage: 75 MG, DAILY
     Route: 065
  2. CELERY ROOT EXTRACT [Interacting]
     Active Substance: CELERY SEED
     Indication: MENOPAUSE
     Dosage: 1000 MG, DAILY
     Route: 065
  3. ST. JOHN^S WORT                    /01166801/ [Interacting]
     Active Substance: ST. JOHN^S WORT
     Indication: MAJOR DEPRESSION
     Dosage: 600 MG, DAILY
     Route: 065

REACTIONS (4)
  - Drug level above therapeutic [Unknown]
  - Bipolar disorder [Recovered/Resolved]
  - Aspartate aminotransferase increased [Unknown]
  - Drug interaction [Unknown]
